FAERS Safety Report 12698706 (Version 1)
Quarter: 2016Q3

REPORT INFORMATION
  Report Type: Spontaneous
  Country: None (occurrence: FR)
  Receive Date: 20160830
  Receipt Date: 20160830
  Transmission Date: 20161109
  Serious: Yes (Other)
  Sender: FDA-Public Use
  Company Number: FR-MERCK KGAA-1056879

PATIENT

DRUGS (1)
  1. NOVOTHYROX [Suspect]
     Active Substance: LEVOTHYROXINE SODIUM

REACTIONS (8)
  - Peripheral coldness [None]
  - Vertigo [None]
  - Drug interaction [None]
  - Dyspnoea [None]
  - Rhinorrhoea [None]
  - Confusional state [None]
  - Pulmonary oedema [None]
  - Fatigue [None]
